FAERS Safety Report 9244281 (Version 1)
Quarter: 2013Q1

REPORT INFORMATION
  Report Type: Spontaneous
  Country: US (occurrence: None)
  Receive Date: 20121127
  Receipt Date: 20121127
  Transmission Date: 20140127
  Serious: Yes (Other)
  Sender: FDA-Public Use
  Company Number: FK201200386

PATIENT
  Age: 44 Year
  Sex: Male
  Weight: 117.2 kg

DRUGS (1)
  1. XYLOCAINE [Suspect]
     Indication: ARTHROSCOPY
     Dosage: 20 ML 2% LIDOCAINE;100 MICROGRAM EPINEPH,?INTRAVENOUS (NOT OTHERWISE SPECIFIED)
     Route: 042
     Dates: start: 20120124, end: 20120124

REACTIONS (1)
  - Drug effect decreased [None]
